FAERS Safety Report 23459658 (Version 2)
Quarter: 2024Q1

REPORT INFORMATION
  Report Type: Spontaneous
  Country: JP (occurrence: JP)
  Receive Date: 20240131
  Receipt Date: 20240216
  Transmission Date: 20240410
  Serious: Yes (Hospitalization, Other)
  Sender: FDA-Public Use
  Company Number: JP-SUN PHARMACEUTICAL INDUSTRIES LTD-2024R1-429002

PATIENT
  Age: 21 Year
  Sex: Female
  Weight: 53 kg

DRUGS (2)
  1. GUANFACINE [Suspect]
     Active Substance: GUANFACINE
     Indication: Attention deficit hyperactivity disorder
     Dosage: UNK (1 MILLIGRAM) DOSE WAS INCREASED FROM 2 TO 3 MG
     Route: 065
  2. SERTRALINE [Suspect]
     Active Substance: SERTRALINE HYDROCHLORIDE
     Indication: Attention deficit hyperactivity disorder
     Dosage: UNK (50 MILLIGRAM)
     Route: 065

REACTIONS (5)
  - Electrocardiogram QT prolonged [Recovering/Resolving]
  - Bradycardia [Unknown]
  - Presyncope [Unknown]
  - Hypotension [Unknown]
  - Toxicity to various agents [Unknown]
